FAERS Safety Report 23437066 (Version 1)
Quarter: 2024Q1

REPORT INFORMATION
  Report Type: Spontaneous
  Country: ES (occurrence: ES)
  Receive Date: 20240124
  Receipt Date: 20240124
  Transmission Date: 20240409
  Serious: Yes (Other)
  Sender: FDA-Public Use
  Company Number: None

PATIENT
  Age: 58 Year
  Sex: Female

DRUGS (6)
  1. IMRALDI [Suspect]
     Active Substance: ADALIMUMAB
     Indication: Spondylitis
     Dosage: 40 MG SOLUTION FOR INJECTION IN PRE-FILLED PEN, 1 PRE-FILLED PEN OF 0.8 ML, TOTAL
     Route: 058
     Dates: start: 20231208, end: 20231208
  2. ESCITALOPRAM [Concomitant]
     Active Substance: ESCITALOPRAM OXALATE
     Indication: Product used for unknown indication
     Route: 048
     Dates: start: 20230322
  3. ARCOXIA [Concomitant]
     Active Substance: ETORICOXIB
     Indication: Product used for unknown indication
     Dosage: ARCOXIA 90 MG FILM-COATED TABLETS, 28 TABLETS
     Route: 048
     Dates: start: 20230525
  4. LORAZEPAM [Concomitant]
     Active Substance: LORAZEPAM
     Indication: Product used for unknown indication
     Route: 048
     Dates: start: 20231030
  5. METHOTREXATE [Concomitant]
     Active Substance: METHOTREXATE
     Indication: Product used for unknown indication
     Dosage: 25 MG INJECTABLE SOLUTION IN PRE-FILLED PEN, 4 PRE-FILLED PENS OF 0.5 ML
     Route: 058
     Dates: start: 20230830, end: 202312
  6. FOLIC ACID [Concomitant]
     Active Substance: FOLIC ACID
     Indication: Product used for unknown indication
     Dosage: 5 MG TABLETS, 28 TABLETS
     Route: 048
     Dates: start: 20230505

REACTIONS (4)
  - Swelling face [Recovered/Resolved]
  - Periorbital oedema [Recovered/Resolved]
  - Conjunctivitis [Recovered/Resolved]
  - Product use in unapproved indication [Unknown]

NARRATIVE: CASE EVENT DATE: 20231208
